FAERS Safety Report 4686788-3 (Version None)
Quarter: 2005Q2

REPORT INFORMATION
  Report Type: 
  Country: None (occurrence: None)
  Receive Date: 20050608
  Receipt Date: 20050404
  Transmission Date: 20051028
  Serious: Yes (Hospitalization)
  Sender: FDA-Public Use
  Company Number: 13575

PATIENT
  Age: 18 Year
  Sex: Male

DRUGS (12)
  1. CLOFARABINE [Suspect]
     Indication: ACUTE LYMPHOCYTIC LEUKAEMIA
     Dosage: 101.4 MG QD IV
     Route: 042
     Dates: start: 20050321, end: 20050326
  2. DEXAMETHASONE [Concomitant]
  3. TEMAZEPAM [Concomitant]
  4. COTRIM [Concomitant]
  5. FUROSEMIDE [Concomitant]
  6. PARACETAMOL [Concomitant]
  7. ONDANSETRON [Concomitant]
  8. TRAMADOL [Concomitant]
  9. VANCOMYCIN [Concomitant]
  10. CLEMASTINE [Concomitant]
  11. CASPOFUNGIN [Concomitant]
  12. RASBURICASE [Concomitant]

REACTIONS (9)
  - DISEASE PROGRESSION [None]
  - DRUG INEFFECTIVE [None]
  - FATIGUE [None]
  - FLUID RETENTION [None]
  - GRAND MAL CONVULSION [None]
  - HYPERTENSION [None]
  - OEDEMA [None]
  - REVERSIBLE POSTERIOR LEUKOENCEPHALOPATHY SYNDROME [None]
  - WHITE BLOOD CELL COUNT INCREASED [None]
